FAERS Safety Report 11026282 (Version 1)
Quarter: 2015Q2

REPORT INFORMATION
  Report Type: Spontaneous
  Country: FR (occurrence: FR)
  Receive Date: 20150414
  Receipt Date: 20150414
  Transmission Date: 20150821
  Serious: Yes (Hospitalization)
  Sender: FDA-Public Use
  Company Number: FR-SA-2015SA045662

PATIENT
  Sex: Female

DRUGS (9)
  1. ALLOPURINOL. [Concomitant]
     Active Substance: ALLOPURINOL
  2. UN-ALFA [Concomitant]
  3. UVEDOSE [Concomitant]
     Active Substance: CHOLECALCIFEROL
  4. LASILIX [Concomitant]
     Active Substance: FUROSEMIDE
  5. EFFERALGAN [Concomitant]
     Active Substance: ACETAMINOPHEN
  6. UMULINE [Concomitant]
     Active Substance: INSULIN HUMAN
     Dates: end: 2015
  7. PLAVIX [Suspect]
     Active Substance: CLOPIDOGREL BISULFATE
     Indication: ARTERITIS
     Route: 048
     Dates: end: 20150216
  8. FOSRENOL [Concomitant]
     Active Substance: LANTHANUM CARBONATE
  9. TRANSIPEG [Concomitant]
     Active Substance: POLYETHYLENE GLYCOL 3350

REACTIONS (4)
  - Melaena [Recovered/Resolved]
  - Diabetic metabolic decompensation [Recovered/Resolved]
  - Anaemia [Recovered/Resolved]
  - Cardiac failure [Recovered/Resolved]

NARRATIVE: CASE EVENT DATE: 20150216
